FAERS Safety Report 6942618-8 (Version None)
Quarter: 2010Q3

REPORT INFORMATION
  Report Type: 
  Country: None (occurrence: None)
  Receive Date: 20100826
  Receipt Date: 20100818
  Transmission Date: 20110219
  Serious: Yes (Other)
  Sender: FDA-Public Use
  Company Number: US-SANOFI-AVENTIS-2010SA049346

PATIENT
  Age: 87 Year
  Sex: Female

DRUGS (3)
  1. PLAVIX [Suspect]
     Indication: STENT PLACEMENT
     Route: 048
     Dates: start: 20100301
  2. WARFARIN SODIUM [Suspect]
     Indication: ATRIAL FIBRILLATION
  3. ASPIRIN [Suspect]
     Indication: STENT PLACEMENT
     Dates: start: 20080101

REACTIONS (4)
  - CATARACT [None]
  - DIZZINESS [None]
  - EYE HAEMORRHAGE [None]
  - TOOTHACHE [None]
